FAERS Safety Report 6831727-X (Version None)
Quarter: 2010Q3

REPORT INFORMATION
  Report Type: 
  Country: None (occurrence: None)
  Receive Date: 20100712
  Receipt Date: 20100702
  Transmission Date: 20110219
  Serious: Yes (Death, Hospitalization)
  Sender: FDA-Public Use
  Company Number: JP-SANOFI-AVENTIS-2010SA030015

PATIENT
  Age: 65 Year
  Sex: Female

DRUGS (10)
  1. TAKEPRON [Suspect]
     Route: 048
     Dates: start: 20100508, end: 20100518
  2. LASIX [Suspect]
     Route: 042
     Dates: start: 20100507, end: 20100525
  3. PANSPORIN [Concomitant]
     Route: 041
     Dates: start: 20100507, end: 20100511
  4. SOLDACTONE [Concomitant]
     Route: 041
     Dates: start: 20100515, end: 20100525
  5. MAGLAX [Concomitant]
     Route: 048
     Dates: start: 20100518
  6. ZYPREXA [Concomitant]
     Indication: SCHIZOPHRENIA
     Dosage: 2.5MG IN MORNING AND 5MG BEFORE SLEEP
     Route: 048
     Dates: start: 20100508, end: 20100526
  7. SILECE [Concomitant]
     Route: 048
     Dates: start: 20100508, end: 20100526
  8. GLYCYRRHIZIC ACID [Concomitant]
     Dosage: DOSE:1 UNIT(S)
     Dates: start: 20100508, end: 20100511
  9. MAGNESIUM OXIDE [Concomitant]
     Route: 048
     Dates: start: 20100508, end: 20100511
  10. GASTER [Concomitant]
     Route: 041
     Dates: start: 20100507, end: 20100508

REACTIONS (2)
  - LIVER DISORDER [None]
  - PNEUMONIA ASPIRATION [None]
